FAERS Safety Report 18556776 (Version 2)
Quarter: 2021Q1

REPORT INFORMATION
  Report Type: Report from Study
  Country: MX (occurrence: MX)
  Receive Date: 20201128
  Receipt Date: 20210302
  Transmission Date: 20210419
  Serious: Yes (Death, Hospitalization)
  Sender: FDA-Public Use
  Company Number: NVSC2020MX312002

PATIENT
  Age: 59 Year
  Sex: Female

DRUGS (1)
  1. TASIGNA [Suspect]
     Active Substance: NILOTINIB
     Indication: CHRONIC MYELOID LEUKAEMIA
     Dosage: 800 MG, QD
     Route: 048
     Dates: start: 20101101

REACTIONS (5)
  - Gastrointestinal disorder [Recovering/Resolving]
  - Gastrointestinal carcinoma [Recovering/Resolving]
  - Respiratory arrest [Fatal]
  - Inappropriate schedule of product administration [Unknown]
  - Gait disturbance [Recovering/Resolving]

NARRATIVE: CASE EVENT DATE: 20101101
